FAERS Safety Report 18465308 (Version 3)
Quarter: 2021Q1

REPORT INFORMATION
  Report Type: Spontaneous
  Country: US (occurrence: US)
  Receive Date: 20201105
  Receipt Date: 20210323
  Transmission Date: 20210419
  Serious: No
  Sender: FDA-Public Use
  Company Number: US-MTPC-MTDA2020-0068361

PATIENT
  Sex: Male

DRUGS (1)
  1. RADICAVA [Suspect]
     Active Substance: EDARAVONE
     Indication: PRODUCT USED FOR UNKNOWN INDICATION
     Dosage: UNK
     Route: 065

REACTIONS (5)
  - Adverse event [Unknown]
  - Gait disturbance [Unknown]
  - Dyspnoea [Recovered/Resolved]
  - Condition aggravated [Unknown]
  - Drug ineffective [Unknown]
